FAERS Safety Report 19845740 (Version 1)
Quarter: 2021Q3

REPORT INFORMATION
  Report Type: Spontaneous
  Country: US (occurrence: US)
  Receive Date: 20210916
  Receipt Date: 20210916
  Transmission Date: 20211014
  Serious: Yes (Hospitalization, Other)
  Sender: FDA-Public Use
  Company Number: US-PFIZER INC-2018519047

PATIENT
  Age: 67 Year
  Sex: Female
  Weight: 81.65 kg

DRUGS (5)
  1. PHENOBARBITAL [PHENOBARBITAL SODIUM] [Concomitant]
     Active Substance: PHENOBARBITAL SODIUM
     Dosage: 32.4 MG
  2. DILANTIN [Suspect]
     Active Substance: PHENYTOIN
     Indication: EPILEPSY
     Dosage: 130 MG, TWICE A DAY (100 MG AND 30 MG TWICE DAILY)
     Route: 048
     Dates: start: 20200221
  3. DILANTIN [Suspect]
     Active Substance: PHENYTOIN
     Dosage: 260 MG, DAILY (100 MG MORNING AND NIGHT 60MG (30MG TWO PILLS AT NOON))
     Route: 048
  4. PHENOBARBITAL [PHENOBARBITAL SODIUM] [Concomitant]
     Active Substance: PHENOBARBITAL SODIUM
     Dosage: 64.8 MG
  5. DILANTIN [Suspect]
     Active Substance: PHENYTOIN
     Indication: FOCAL DYSCOGNITIVE SEIZURES
     Dosage: 100 MG, TWICE A DAY (1 CAPSULE)
     Route: 048
     Dates: start: 20150602, end: 20200220

REACTIONS (5)
  - Nerve injury [Unknown]
  - Off label use [Unknown]
  - COVID-19 [Unknown]
  - Cardiac failure congestive [Unknown]
  - Product prescribing error [Unknown]

NARRATIVE: CASE EVENT DATE: 20150602
